FAERS Safety Report 7378439-4 (Version None)
Quarter: 2011Q1

REPORT INFORMATION
  Report Type: 
  Country: None (occurrence: None)
  Receive Date: 20110328
  Receipt Date: 20110322
  Transmission Date: 20110831
  Serious: Yes (Hospitalization)
  Sender: FDA-Public Use
  Company Number: CH-MERCK-1103USA02932

PATIENT
  Age: 55 Year
  Sex: Female
  Weight: 76 kg

DRUGS (2)
  1. CALCIMAGON D3 [Concomitant]
     Indication: OSTEOPOROSIS
     Route: 048
  2. FOSAMAX [Suspect]
     Indication: OSTEOPOROSIS
     Route: 048
     Dates: start: 19970101, end: 20100101

REACTIONS (1)
  - PATHOLOGICAL FRACTURE [None]
